FAERS Safety Report 10576952 (Version 4)
Quarter: 2014Q4

REPORT INFORMATION
  Report Type: Spontaneous
  Country: IT (occurrence: IT)
  Receive Date: 20141111
  Receipt Date: 20141202
  Transmission Date: 20150529
  Serious: Yes (Hospitalization)
  Sender: FDA-Public Use
  Company Number: IT-PFIZER INC-2014309305

PATIENT
  Age: 84 Year
  Sex: Female

DRUGS (16)
  1. FUROSEMIDE. [Concomitant]
     Active Substance: FUROSEMIDE
     Dosage: 50 MG, DAILY (25MG TWO DOSAGE FORM DAILY)
  2. KEPPRA [Suspect]
     Active Substance: LEVETIRACETAM
     Indication: EPILEPSY
  3. PANTOPRAZOLE [Concomitant]
     Active Substance: PANTOPRAZOLE SODIUM
     Dosage: 40 MG, 1X/DAY
  4. BISOPROLOL [Concomitant]
     Active Substance: BISOPROLOL
     Dosage: 2.5 MG, 2X/DAY
  5. LYRICA [Suspect]
     Active Substance: PREGABALIN
     Indication: EPILEPSY
  6. KANRENOL [Concomitant]
     Active Substance: CANRENOATE POTASSIUM
     Dosage: 50 MG, DAILY
  7. ACICLOVIR [Concomitant]
     Active Substance: ACYCLOVIR
     Route: 047
  8. CEFTRIAXON [Concomitant]
     Active Substance: CEFTRIAXONE
     Dosage: 2 G, UNK
     Route: 042
  9. INSULIN GLARGINE [Concomitant]
     Active Substance: INSULIN GLARGINE
     Dosage: UNK
  10. INSULIN LISPRO [Concomitant]
     Active Substance: INSULIN LISPRO
     Dosage: UNK
  11. KEPPRA [Suspect]
     Active Substance: LEVETIRACETAM
     Indication: NEURALGIA
     Dosage: 1000 MG, 1X/DAY
     Route: 048
     Dates: start: 20140901, end: 20141004
  12. ATROPIN [Concomitant]
     Route: 047
  13. PAROXETINE [Concomitant]
     Active Substance: PAROXETINE\PAROXETINE HYDROCHLORIDE
     Dosage: 20 MG, DAILY
  14. LYRICA [Suspect]
     Active Substance: PREGABALIN
     Indication: NEURALGIA
     Dosage: 150 MG, 1X/DAY
     Route: 048
     Dates: start: 20140920, end: 20141004
  15. PARACETAMOL [Concomitant]
     Active Substance: ACETAMINOPHEN
     Dosage: 500 MG, AS NEEDED
  16. FENTANIL [Concomitant]
     Active Substance: FENTANYL
     Indication: NEURALGIA
     Dosage: 25 ?G, 2X/DAY

REACTIONS (5)
  - Renal failure [Recovered/Resolved]
  - Sepsis [Recovered/Resolved]
  - Liver injury [Recovered/Resolved]
  - Hepatic failure [Recovered/Resolved]
  - Poisoning [Recovered/Resolved]

NARRATIVE: CASE EVENT DATE: 20141004
